FAERS Safety Report 13240537 (Version 1)
Quarter: 2017Q1

REPORT INFORMATION
  Report Type: Spontaneous
  Country: US (occurrence: US)
  Receive Date: 20170216
  Receipt Date: 20170216
  Transmission Date: 20170428
  Serious: No
  Sender: FDA-Public Use
  Company Number: US-RELYPSA-RLY2016003343

PATIENT
  Age: 79 Year
  Sex: Male

DRUGS (6)
  1. LEVOTHYROXIN [Concomitant]
     Active Substance: LEVOTHYROXINE
  2. ATORVASTATIN [Concomitant]
     Active Substance: ATORVASTATIN
  3. VALSARTAN. [Concomitant]
     Active Substance: VALSARTAN
  4. SPIRONOLACTON [Concomitant]
     Active Substance: SPIRONOLACTONE
  5. VELTASSA [Suspect]
     Active Substance: PATIROMER
     Indication: BLOOD POTASSIUM INCREASED
     Dosage: 8.4 G, QD
     Route: 065
     Dates: start: 20161018
  6. SODIUM BICARBONATE. [Concomitant]
     Active Substance: SODIUM BICARBONATE

REACTIONS (7)
  - Blood potassium abnormal [Unknown]
  - Product solubility abnormal [Recovered/Resolved]
  - Ear congestion [Unknown]
  - Product taste abnormal [Recovered/Resolved]
  - Hypoacusis [Unknown]
  - Mood altered [Unknown]
  - Constipation [Not Recovered/Not Resolved]

NARRATIVE: CASE EVENT DATE: 201610
